FAERS Safety Report 4269921-7 (Version None)
Quarter: 2004Q1

REPORT INFORMATION
  Report Type: 
  Country: None (occurrence: None)
  Receive Date: 20040113
  Receipt Date: 20040113
  Transmission Date: 20041129
  Serious: Yes (Hospitalization)
  Sender: FDA-Public Use
  Company Number: None

PATIENT
  Age: 53 Year
  Sex: Male

DRUGS (8)
  1. PHENYTOIN [Suspect]
     Indication: CONVULSION
     Dosage: 200 MG Q AM /300 MG QPM
     Dates: start: 20000101
  2. KEPPRA [Concomitant]
  3. CARBAMAZEPINE [Concomitant]
  4. FELODIPINE [Concomitant]
  5. ALLEGRA [Concomitant]
  6. MAG OXIDE [Concomitant]
  7. METOPROLOL [Concomitant]
  8. NAPROXEM [Concomitant]

REACTIONS (1)
  - NYSTAGMUS [None]
